FAERS Safety Report 8327273-7 (Version None)
Quarter: 2012Q2

REPORT INFORMATION
  Report Type: 
  Country: None (occurrence: None)
  Receive Date: 20120502
  Receipt Date: 20120423
  Transmission Date: 20120825
  Serious: Yes (Other)
  Sender: FDA-Public Use
  Company Number: US-AMGEN-USASP2011067980

PATIENT
  Age: 55 Year
  Sex: Female

DRUGS (4)
  1. ENBREL [Suspect]
     Indication: FIBROMYALGIA
  2. INSULIN [Concomitant]
     Dosage: UNK
  3. IMURAN [Concomitant]
     Dosage: 100 MG, BID
     Dates: start: 20120307
  4. ENBREL [Suspect]
     Indication: RHEUMATOID ARTHRITIS
     Dosage: 50 MG, QWK
     Dates: start: 20111104

REACTIONS (16)
  - NAUSEA [None]
  - PAIN [None]
  - HYPOGLYCAEMIA [None]
  - DIARRHOEA [None]
  - DEPRESSION [None]
  - HYPERSENSITIVITY [None]
  - RHEUMATOID ARTHRITIS [None]
  - ABDOMINAL PAIN UPPER [None]
  - INJECTION SITE HAEMATOMA [None]
  - INJECTION SITE SWELLING [None]
  - FIBROMYALGIA [None]
  - MUSCULOSKELETAL STIFFNESS [None]
  - ERYTHEMA [None]
  - INJECTION SITE PRURITUS [None]
  - PRURITUS GENERALISED [None]
  - LYMPHADENOPATHY [None]
